FAERS Safety Report 4992232-9 (Version None)
Quarter: 2006Q2

REPORT INFORMATION
  Report Type: 
  Country: None (occurrence: None)
  Receive Date: 20060504
  Receipt Date: 20060310
  Transmission Date: 20061013
  Serious: Yes (Other)
  Sender: FDA-Public Use
  Company Number: JP-ROCHE-440373

PATIENT
  Age: 56 Year
  Sex: Female
  Weight: 70 kg

DRUGS (3)
  1. TAMIFLU [Suspect]
     Route: 048
     Dates: start: 20060203, end: 20060204
  2. TAMIFLU [Suspect]
     Route: 048
     Dates: start: 20060205, end: 20060205
  3. CALONAL [Concomitant]
     Route: 048
     Dates: start: 20060203

REACTIONS (4)
  - ABDOMINAL DISCOMFORT [None]
  - HYPOAESTHESIA [None]
  - HYPOTHERMIA [None]
  - LIMB DISCOMFORT [None]
